FAERS Safety Report 9116527 (Version 1)
Quarter: 2013Q1

REPORT INFORMATION
  Report Type: Spontaneous
  Country: US (occurrence: US)
  Receive Date: 20130225
  Receipt Date: 20130225
  Transmission Date: 20140127
  Serious: No
  Sender: FDA-Public Use
  Company Number: US-NOVEN-13US006058

PATIENT
  Age: 51 Year
  Sex: Female
  Weight: 61.22 kg

DRUGS (1)
  1. MINIVELLE [Suspect]
     Indication: PRODUCT USED FOR UNKNOWN INDICATION
     Dosage: 0.1 MG, UNK
     Route: 062
     Dates: start: 20130122, end: 20130123

REACTIONS (2)
  - Paraesthesia oral [Recovered/Resolved]
  - Palpitations [Recovered/Resolved]
